FAERS Safety Report 8280955-8 (Version None)
Quarter: 2012Q2

REPORT INFORMATION
  Report Type: 
  Country: None (occurrence: None)
  Receive Date: 20120412
  Receipt Date: 20120330
  Transmission Date: 20120825
  Serious: Yes (Death)
  Sender: FDA-Public Use
  Company Number: DE-BAXTER-2012BH007164

PATIENT
  Sex: Male

DRUGS (3)
  1. EXTRANEAL [Suspect]
     Route: 033
  2. PHYSIONEAL 35 GLUCOSE 1,36 % W/V 13,6 MG/ML PERITONEALDIALYSELOSUNG [Suspect]
     Route: 033
     Dates: start: 20081227
  3. PHYSIONEAL 35 GLUCOSE 2,27 % W/V 22,7 MG/ML PERITONEALDIALYSELOSUNG [Suspect]
     Route: 033
     Dates: start: 20081227

REACTIONS (1)
  - AMYLOIDOSIS [None]
